FAERS Safety Report 8513728-9 (Version None)
Quarter: 2012Q3

REPORT INFORMATION
  Report Type: 
  Country: None (occurrence: None)
  Receive Date: 20120717
  Receipt Date: 20120709
  Transmission Date: 20120928
  Serious: Yes (Hospitalization)
  Sender: FDA-Public Use
  Company Number: US-BAYER-2011-119748

PATIENT
  Age: 21 Year
  Sex: Female
  Weight: 57.596 kg

DRUGS (9)
  1. DIFLUCAN [Concomitant]
  2. YASMIN [Suspect]
     Indication: CONTRACEPTION
     Dosage: UNK
     Route: 048
     Dates: start: 20031101, end: 20031201
  3. YASMIN [Suspect]
     Indication: DYSMENORRHOEA
  4. YASMIN [Suspect]
     Indication: PREMENSTRUAL SYNDROME
  5. DICLOXACILLIN [Concomitant]
  6. VALTREX [Concomitant]
  7. IBUPROFEN [Concomitant]
  8. DESOGEN [Concomitant]
     Dosage: UNK
     Dates: start: 20020101, end: 20031214
  9. ALLEGRA-D 12 HOUR [Concomitant]
     Indication: HYPERSENSITIVITY
     Dosage: UNK
     Dates: start: 20000101, end: 20040101

REACTIONS (6)
  - DEEP VEIN THROMBOSIS [None]
  - INJURY [None]
  - EMOTIONAL DISTRESS [None]
  - ANXIETY [None]
  - MENTAL DISORDER [None]
  - PAIN [None]
